FAERS Safety Report 9158544 (Version 1)
Quarter: 2013Q1

REPORT INFORMATION
  Report Type: Report from Study
  Country: TR (occurrence: TR)
  Receive Date: 20130312
  Receipt Date: 20130312
  Transmission Date: 20140127
  Serious: Yes (Death)
  Sender: FDA-Public Use
  Company Number: TR-US-EMD SERONO, INC.-7198870

PATIENT
  Age: 0 Year
  Sex: Female

DRUGS (1)
  1. SAIZEN [Suspect]
     Indication: HYPOPITUITARISM
     Route: 058
     Dates: start: 20130107

REACTIONS (1)
  - Death [Fatal]
